FAERS Safety Report 9029747 (Version 2)
Quarter: 2013Q1

REPORT INFORMATION
  Report Type: Spontaneous
  Country: US (occurrence: US)
  Receive Date: 20130124
  Receipt Date: 20130226
  Transmission Date: 20140127
  Serious: Yes (Hospitalization, Other)
  Sender: FDA-Public Use
  Company Number: US-009507513-1301USA008492

PATIENT
  Age: 61 None
  Sex: Female

DRUGS (2)
  1. CLARITIN-D 24 HOUR [Suspect]
     Indication: NASOPHARYNGITIS
     Dosage: 20 MG, QD
     Route: 048
     Dates: start: 20130115, end: 20130116
  2. TYLENOL [Suspect]
     Indication: NASOPHARYNGITIS
     Dosage: UNK
     Dates: start: 20130116, end: 20130116

REACTIONS (9)
  - Eye operation [Unknown]
  - Blindness unilateral [Unknown]
  - Glaucoma [Recovered/Resolved]
  - Intraocular pressure increased [Recovered/Resolved]
  - Eye pain [Recovered/Resolved]
  - Vision blurred [Unknown]
  - Facial pain [Recovered/Resolved]
  - Ocular hyperaemia [Unknown]
  - Accidental overdose [Unknown]
